FAERS Safety Report 10619973 (Version 1)
Quarter: 2014Q4

REPORT INFORMATION
  Report Type: Spontaneous
  Country: US (occurrence: None)
  Receive Date: 20141128
  Receipt Date: 20141128
  Transmission Date: 20150529
  Serious: Yes (Hospitalization)
  Sender: FDA-Public Use
  Company Number: US-RRD-14-00125

PATIENT
  Age: 25 Year
  Sex: Female
  Weight: 63.5 kg

DRUGS (3)
  1. DILAUDID [Concomitant]
     Active Substance: HYDROMORPHONE HYDROCHLORIDE
  2. GABAPENTIN (GABAPENTIN) (GABAPENTIN) [Concomitant]
     Active Substance: GABAPENTIN
  3. PANHEMATIN [Suspect]
     Active Substance: HEMIN
     Indication: PORPHYRIA ACUTE
     Dosage: UNKNOWN (2 IN 1 WK)
     Route: 041
     Dates: start: 201403

REACTIONS (8)
  - Drug administration error [None]
  - Therapy change [None]
  - Pyrexia [None]
  - Catheter site pain [None]
  - Nausea [None]
  - Device failure [None]
  - Catheter site swelling [None]
  - Feeling abnormal [None]

NARRATIVE: CASE EVENT DATE: 2014
